FAERS Safety Report 4388226-7 (Version None)
Quarter: 2004Q3

REPORT INFORMATION
  Report Type: 
  Country: None (occurrence: None)
  Receive Date: 20040701
  Receipt Date: 20040621
  Transmission Date: 20050211
  Serious: Yes (Death, Life-Threatening)
  Sender: FDA-Public Use
  Company Number: DE-BRISTOL-MYERS SQUIBB COMPANY-12621736

PATIENT
  Age: 39 Year
  Sex: Female

DRUGS (5)
  1. VIDEX [Suspect]
     Indication: HIV INFECTION
     Route: 048
     Dates: start: 20030910
  2. EFAVIRENZ [Concomitant]
  3. LAMIVUDINE [Concomitant]
  4. ETHAMBUTOL HCL [Concomitant]
  5. CLARITHROMYCIN [Concomitant]

REACTIONS (3)
  - CARDIOGENIC SHOCK [None]
  - LACTIC ACIDOSIS [None]
  - MULTI-ORGAN FAILURE [None]
